FAERS Safety Report 9793277 (Version 2)
Quarter: 2014Q1

REPORT INFORMATION
  Report Type: Spontaneous
  Country: US (occurrence: US)
  Receive Date: 20140102
  Receipt Date: 20140102
  Transmission Date: 20141002
  Serious: No
  Sender: FDA-Public Use
  Company Number: US-MALLINCKRODT-T201304586

PATIENT
  Sex: Female
  Weight: 79.37 kg

DRUGS (11)
  1. METHYLPHENIDATE HYDROCHLORIDE EXTENDED RELEASE TABLETS [Suspect]
     Indication: ATTENTION DEFICIT/HYPERACTIVITY DISORDER
     Dosage: 36 MG, QD
     Route: 048
     Dates: start: 2013
  2. GAVISCON                           /00237601/ [Concomitant]
     Indication: ANTACID THERAPY
     Dosage: 10 ML, BID
     Route: 048
  3. NEXIUM                             /01479302/ [Concomitant]
     Indication: GASTROOESOPHAGEAL REFLUX DISEASE
     Dosage: 40 MG, QD
     Route: 048
  4. VICODIN [Concomitant]
     Indication: PAIN
     Dosage: UNK, PRN
     Route: 048
  5. NUVIGIL [Concomitant]
     Indication: SOMNOLENCE
     Dosage: 150 MG, QD
     Route: 048
  6. LITHIUM [Concomitant]
     Indication: MANIA
     Dosage: 300 MG, BID
     Route: 048
  7. RISPERIDONE [Concomitant]
     Indication: MANIA
     Dosage: 2 MG X 1/4, 0.5 MG, QD
     Route: 048
  8. LISINOPRIL [Concomitant]
     Indication: HYPERTENSION
     Dosage: UNK
     Route: 048
  9. LEVOTHYROXINE [Concomitant]
     Indication: HYPOTHYROIDISM
     Dosage: 0.075 MG, QD
     Route: 048
  10. CELEBREX [Concomitant]
     Indication: ARTHRITIS
     Dosage: 200 MG, QD
     Route: 048
  11. CRESTOR [Concomitant]
     Indication: BLOOD CHOLESTEROL INCREASED
     Dosage: 5 MG, QD
     Route: 048

REACTIONS (3)
  - Feeling abnormal [Recovered/Resolved]
  - Circadian rhythm sleep disorder [Recovered/Resolved]
  - Somnolence [Recovered/Resolved]
